FAERS Safety Report 8439994-6 (Version None)
Quarter: 2012Q2

REPORT INFORMATION
  Report Type: 
  Country: None (occurrence: None)
  Receive Date: 20120615
  Receipt Date: 20120613
  Transmission Date: 20120825
  Serious: Yes (Other)
  Sender: FDA-Public Use
  Company Number: US-PFIZER INC-2012143484

PATIENT
  Sex: Female
  Weight: 99 kg

DRUGS (5)
  1. ISOPROPANOL [Suspect]
     Indication: HYPERTENSION
     Dosage: 20 MG, DAILY
     Dates: start: 20120401
  2. NORVASC [Suspect]
     Indication: HYPERTENSION
     Dosage: UNK,DAILY
     Dates: start: 20120401
  3. CELEXA [Concomitant]
     Indication: OBSESSIVE-COMPULSIVE DISORDER
     Dosage: 45 MG, DAILY
     Route: 048
  4. VISTARIL [Suspect]
     Indication: ANXIETY
     Dosage: 1 MG, 4X/DAY
  5. PRILOSEC [Concomitant]
     Indication: PANCREATITIS CHRONIC
     Dosage: UNK

REACTIONS (2)
  - ABASIA [None]
  - RHEUMATOID ARTHRITIS [None]
